FAERS Safety Report 9578734 (Version 2)
Quarter: 2013Q4

REPORT INFORMATION
  Report Type: Spontaneous
  Country: US (occurrence: US)
  Receive Date: 20131001
  Receipt Date: 20131001
  Transmission Date: 20140711
  Serious: No
  Sender: FDA-Public Use
  Company Number: US-AMGEN-USASP2013006922

PATIENT
  Age: 73 Year
  Sex: Female

DRUGS (1)
  1. ENBREL [Suspect]
     Indication: RHEUMATOID ARTHRITIS
     Dosage: 50 MG, ONCE A WEEK
     Route: 058
     Dates: start: 20130106, end: 20130120

REACTIONS (8)
  - Drug hypersensitivity [Unknown]
  - Injection site recall reaction [Unknown]
  - Injection site reaction [Recovered/Resolved]
  - Injection site bruising [Unknown]
  - Injection site erythema [Recovered/Resolved]
  - Injection site inflammation [Unknown]
  - Injection site warmth [Recovered/Resolved]
  - Injection site rash [Recovered/Resolved]
